FAERS Safety Report 22048670 (Version 4)
Quarter: 2023Q2

REPORT INFORMATION
  Report Type: Spontaneous
  Country: FR (occurrence: FR)
  Receive Date: 20230301
  Receipt Date: 20230427
  Transmission Date: 20230722
  Serious: Yes (Other)
  Sender: FDA-Public Use
  Company Number: FR-THEA-2023000351

PATIENT
  Age: 75 Year
  Sex: Female

DRUGS (3)
  1. LATANOPROST [Suspect]
     Active Substance: LATANOPROST
     Indication: Intraocular pressure increased
     Dosage: 1 DROP IN THE EVENING IN BOTH EYES
     Route: 047
     Dates: start: 20230220, end: 20230221
  2. ATENOLOL [Concomitant]
     Active Substance: ATENOLOL
     Indication: Hypertension
  3. Lercapress 20/10 [Concomitant]
     Indication: Hypertension

REACTIONS (9)
  - Palpitations [Recovered/Resolved]
  - Burning sensation mucosal [Recovered/Resolved]
  - Throat irritation [Recovered/Resolved]
  - Dyspepsia [Recovered/Resolved]
  - Productive cough [Recovered/Resolved]
  - Eye pain [Recovered/Resolved]
  - Vision blurred [Recovering/Resolving]
  - Product complaint [Unknown]
  - Overdose [Unknown]

NARRATIVE: CASE EVENT DATE: 20230220
